FAERS Safety Report 23853635 (Version 3)
Quarter: 2025Q2

REPORT INFORMATION
  Report Type: Spontaneous
  Country: US (occurrence: US)
  Receive Date: 20240514
  Receipt Date: 20250530
  Transmission Date: 20250717
  Serious: Yes (Hospitalization, Other)
  Sender: SANOFI AVENTIS
  Company Number: US-SA-SAC20240513000206

PATIENT
  Age: 59 Year
  Sex: Male
  Weight: 110.41 kg

DRUGS (1)
  1. DUPIXENT [Suspect]
     Active Substance: DUPILUMAB
     Indication: Asthma
     Dosage: 300 MG, QOW
     Route: 058
     Dates: start: 2023

REACTIONS (11)
  - Bronchial oedema [Unknown]
  - Influenza [Recovering/Resolving]
  - Respiratory syncytial virus infection [Recovering/Resolving]
  - Wheezing [Unknown]
  - Cough [Unknown]
  - Tendon disorder [Unknown]
  - COVID-19 [Unknown]
  - Arthropathy [Unknown]
  - Oxygen saturation decreased [Recovered/Resolved]
  - Sinusitis [Unknown]
  - Tooth extraction [Unknown]

NARRATIVE: CASE EVENT DATE: 20230101
